FAERS Safety Report 9130755 (Version 2)
Quarter: 2013Q1

REPORT INFORMATION
  Report Type: Spontaneous
  Country: US (occurrence: US)
  Receive Date: 20130301
  Receipt Date: 20130322
  Transmission Date: 20140127
  Serious: Yes (Other)
  Sender: FDA-Public Use
  Company Number: PHEH2013US004993

PATIENT
  Age: 64 Year
  Sex: Male
  Weight: 73 kg

DRUGS (1)
  1. GLEEVEC [Suspect]
     Indication: CHRONIC MYELOID LEUKAEMIA
     Dosage: 400 MG, QD
     Route: 048
     Dates: start: 20081203

REACTIONS (14)
  - Throat cancer [Unknown]
  - Second primary malignancy [Unknown]
  - Tonsil cancer [Unknown]
  - Cerebrovascular accident [Unknown]
  - Paralysis [Unknown]
  - Squamous cell carcinoma [Unknown]
  - Lymphadenopathy [Unknown]
  - Osteoporosis [Unknown]
  - Asthma [Unknown]
  - Depression [Unknown]
  - Blepharitis [Not Recovered/Not Resolved]
  - Rash [Recovering/Resolving]
  - Hypertension [Unknown]
  - Sciatica [Unknown]
